FAERS Safety Report 4983757-0 (Version None)
Quarter: 2006Q1

REPORT INFORMATION
  Report Type: 
  Country: None (occurrence: None)
  Receive Date: 20060302
  Receipt Date: 20051203
  Transmission Date: 20060701
  Serious: Yes (Other)
  Sender: FDA-Public Use
  Company Number: 218333

PATIENT
  Sex: Female

DRUGS (8)
  1. NUTROPIN AQ [Suspect]
     Indication: GROWTH HORMONE DEFICIENCY
     Dosage: 10 UNIT, QD
  2. PRANDIN [Concomitant]
  3. METFORMIN [Concomitant]
  4. SYNTHROID [Concomitant]
  5. PREDNISONE TAB [Concomitant]
  6. ZOCOR [Concomitant]
  7. FLUIDS [Concomitant]
  8. UNKNOWN MEDICATIONS [Concomitant]

REACTIONS (3)
  - HYPERGLYCAEMIA [None]
  - MEDICATION ERROR [None]
  - OVERDOSE [None]
